FAERS Safety Report 17093254 (Version 1)
Quarter: 2019Q4

REPORT INFORMATION
  Report Type: Spontaneous
  Country: US (occurrence: US)
  Receive Date: 20191129
  Receipt Date: 20191129
  Transmission Date: 20200122
  Serious: No
  Sender: FDA-Public Use
  Company Number: US-TEVA-2019-US-1141976

PATIENT
  Age: 43 Year
  Sex: Male

DRUGS (1)
  1. CARBAMAZEPINE-TEVA [Suspect]
     Active Substance: CARBAMAZEPINE
     Indication: SEIZURE
     Route: 065

REACTIONS (6)
  - Aura [Unknown]
  - Anxiety [Unknown]
  - Product substitution issue [Unknown]
  - Insomnia [Unknown]
  - Depression [Unknown]
  - Deja vu [Unknown]
